FAERS Safety Report 4499737-8 (Version None)
Quarter: 2004Q4

REPORT INFORMATION
  Report Type: 
  Country: None (occurrence: None)
  Receive Date: 20041112
  Receipt Date: 20041025
  Transmission Date: 20050328
  Serious: Yes (Other)
  Sender: FDA-Public Use
  Company Number: 200420698GDDC

PATIENT
  Sex: Female

DRUGS (4)
  1. KETEK [Suspect]
     Indication: PHARYNGITIS
     Route: 048
     Dates: start: 20031025, end: 20031027
  2. NIMESULIDE [Concomitant]
     Route: 048
     Dates: start: 20031025, end: 20031026
  3. AMBROXOL [Concomitant]
     Route: 048
     Dates: start: 20031025, end: 20031026
  4. ACETAMINOPHEN [Concomitant]
     Route: 048
     Dates: start: 20031025, end: 20031026

REACTIONS (5)
  - AMAUROSIS [None]
  - EYE PAIN [None]
  - HYPERMETROPIA [None]
  - OPTIC NEURITIS [None]
  - VISION BLURRED [None]
